FAERS Safety Report 5225526-2 (Version None)
Quarter: 2007Q1

REPORT INFORMATION
  Report Type: 
  Country: None (occurrence: None)
  Receive Date: 20061201
  Receipt Date: 20060929
  Transmission Date: 20070707
  Serious: Yes (Other)
  Sender: FDA-Public Use
  Company Number: US200609005542

PATIENT
  Age: 35 Year
  Sex: Female

DRUGS (6)
  1. CYMBALTA [Suspect]
     Indication: FIBROMYALGIA
     Dosage: 60 MG
  2. ULTRAM [Concomitant]
  3. VOLTAREN /SCH/(DICLOFENAC POTASSIUM) [Concomitant]
  4. PLAQUENIL [Concomitant]
  5. ROBAXIN [Concomitant]
  6. ESZOPICLONE (ESZOPICLONE) [Concomitant]

REACTIONS (1)
  - CONVULSION [None]
